FAERS Safety Report 25704857 (Version 3)
Quarter: 2025Q4

REPORT INFORMATION
  Report Type: Spontaneous
  Country: US (occurrence: US)
  Receive Date: 20250820
  Receipt Date: 20251201
  Transmission Date: 20260117
  Serious: Yes (Other)
  Sender: CSL BEHRING
  Company Number: US-BEH-2025216142

PATIENT
  Age: 60 Year
  Sex: Male

DRUGS (11)
  1. AFSTYLA ANTIHEMOPHILIC FACTOR (RECOMBINANT), SINGLE CHAIN [Suspect]
     Active Substance: LONOCTOCOG ALFA
     Indication: Factor VIII deficiency
     Dosage: 2220 IU, PRN
     Route: 042
     Dates: start: 202504
  2. AFSTYLA ANTIHEMOPHILIC FACTOR (RECOMBINANT), SINGLE CHAIN [Suspect]
     Active Substance: LONOCTOCOG ALFA
     Indication: Factor VIII deficiency
     Dosage: 2220 IU, PRN
     Route: 042
     Dates: start: 202504
  3. AFSTYLA ANTIHEMOPHILIC FACTOR (RECOMBINANT), SINGLE CHAIN [Suspect]
     Active Substance: LONOCTOCOG ALFA
     Dosage: 2500 IU, PRN
     Route: 042
     Dates: start: 202504
  4. AFSTYLA ANTIHEMOPHILIC FACTOR (RECOMBINANT), SINGLE CHAIN [Suspect]
     Active Substance: LONOCTOCOG ALFA
     Dosage: 2500 IU, PRN
     Route: 042
     Dates: start: 202504
  5. AFSTYLA ANTIHEMOPHILIC FACTOR (RECOMBINANT), SINGLE CHAIN [Suspect]
     Active Substance: LONOCTOCOG ALFA
     Dosage: 5000 IU, PRN
     Route: 042
     Dates: start: 202504
  6. AFSTYLA ANTIHEMOPHILIC FACTOR (RECOMBINANT), SINGLE CHAIN [Suspect]
     Active Substance: LONOCTOCOG ALFA
     Dosage: 5000 IU, PRN
     Route: 042
     Dates: start: 202504
  7. AFSTYLA ANTIHEMOPHILIC FACTOR (RECOMBINANT), SINGLE CHAIN [Suspect]
     Active Substance: LONOCTOCOG ALFA
     Dosage: 2000 IU, PRN
     Route: 065
     Dates: start: 202504
  8. AFSTYLA ANTIHEMOPHILIC FACTOR (RECOMBINANT), SINGLE CHAIN [Suspect]
     Active Substance: LONOCTOCOG ALFA
     Dosage: 2000 IU, PRN
     Route: 065
     Dates: start: 202504
  9. AFSTYLA ANTIHEMOPHILIC FACTOR (RECOMBINANT), SINGLE CHAIN [Suspect]
     Active Substance: LONOCTOCOG ALFA
     Dosage: 2500 IU, PRN
     Route: 065
     Dates: start: 202504
  10. AFSTYLA ANTIHEMOPHILIC FACTOR (RECOMBINANT), SINGLE CHAIN [Suspect]
     Active Substance: LONOCTOCOG ALFA
     Dosage: 2500 IU, PRN
     Route: 065
     Dates: start: 202504
  11. HEMLIBRA [Concomitant]
     Active Substance: EMICIZUMAB-KXWH
     Indication: Prophylaxis
     Dosage: UNK

REACTIONS (4)
  - Haemarthrosis [Unknown]
  - Gingival bleeding [Unknown]
  - Mouth haemorrhage [Unknown]
  - Gingival bleeding [Unknown]

NARRATIVE: CASE EVENT DATE: 20250801
